FAERS Safety Report 20095706 (Version 1)
Quarter: 2021Q4

REPORT INFORMATION
  Report Type: Spontaneous
  Country: US (occurrence: None)
  Receive Date: 20211119
  Receipt Date: 20211119
  Transmission Date: 20220304
  Serious: Yes (Life-Threatening)
  Sender: FDA-Public Use
  Company Number: None

PATIENT
  Age: 65 Year
  Sex: Female
  Weight: 73 kg

DRUGS (17)
  1. FLUOXETINE [Suspect]
     Active Substance: FLUOXETINE HYDROCHLORIDE
     Indication: Depression
     Dosage: FREQUENCY : DAILY;?
     Route: 048
     Dates: start: 20170906, end: 20210830
  2. IBUPROFEN [Suspect]
     Active Substance: IBUPROFEN
     Indication: Pain
     Dosage: FREQUENCY : 3 TIMES A DAY;?
     Route: 048
     Dates: start: 20210828, end: 20210830
  3. APAP [Concomitant]
     Active Substance: ACETAMINOPHEN
  4. ASPIRIN [Concomitant]
     Active Substance: ASPIRIN
  5. DIPHENHYDRAMINE [Concomitant]
     Active Substance: DIPHENHYDRAMINE
  6. FUROSEMIDE [Concomitant]
     Active Substance: FUROSEMIDE
  7. HALDOL DECANOATE [Concomitant]
     Active Substance: HALOPERIDOL DECANOATE
  8. LISINOPRIL [Concomitant]
     Active Substance: LISINOPRIL
  9. METFORMIN [Concomitant]
     Active Substance: METFORMIN HYDROCHLORIDE
  10. MIRTAZAPINE [Concomitant]
     Active Substance: MIRTAZAPINE
  11. OLANZAPINE [Concomitant]
     Active Substance: OLANZAPINE
  12. EMPAGLIFLOZIN [Concomitant]
     Active Substance: EMPAGLIFLOZIN
  13. Ploglitazone [Concomitant]
  14. MIRALAX [Concomitant]
     Active Substance: POLYETHYLENE GLYCOL 3350
  15. RAMELTEON [Concomitant]
     Active Substance: RAMELTEON
  16. VITAMIN D [Concomitant]
     Active Substance: VITAMIN D NOS
  17. TRAMADOL [Concomitant]
     Active Substance: TRAMADOL

REACTIONS (6)
  - Haemoglobin increased [None]
  - Haematocrit increased [None]
  - Fall [None]
  - Humerus fracture [None]
  - Peripheral swelling [None]
  - Soft tissue haemorrhage [None]

NARRATIVE: CASE EVENT DATE: 20210831
